FAERS Safety Report 15262363 (Version 2)
Quarter: 2018Q3

REPORT INFORMATION
  Report Type: Spontaneous
  Country: US (occurrence: US)
  Receive Date: 20180809
  Receipt Date: 20180822
  Transmission Date: 20181010
  Serious: No
  Sender: FDA-Public Use
  Company Number: US-TEVA-2018-US-938681

PATIENT

DRUGS (1)
  1. ENOXAPARIN [Suspect]
     Active Substance: ENOXAPARIN
     Indication: ANTICOAGULANT THERAPY
     Dosage: 40MG/0.4ML
     Route: 065

REACTIONS (7)
  - Injection site mass [Unknown]
  - Urticaria [Unknown]
  - Injection site pain [Unknown]
  - Contusion [Unknown]
  - Spider vein [Unknown]
  - Device malfunction [Unknown]
  - Blister [Unknown]
